APPROVED DRUG PRODUCT: BISOPROLOL FUMARATE AND HYDROCHLOROTHIAZIDE
Active Ingredient: BISOPROLOL FUMARATE; HYDROCHLOROTHIAZIDE
Strength: 5MG;6.25MG
Dosage Form/Route: TABLET;ORAL
Application: A075642 | Product #001
Applicant: APOTHECON INC DIV BRISTOL MYERS SQUIBB
Approved: Dec 27, 2000 | RLD: No | RS: No | Type: DISCN